FAERS Safety Report 10154230 (Version 1)
Quarter: 2014Q2

REPORT INFORMATION
  Report Type: Spontaneous
  Country: US (occurrence: US)
  Receive Date: 20140506
  Receipt Date: 20140506
  Transmission Date: 20141212
  Serious: No
  Sender: FDA-Public Use
  Company Number: US-PFIZER INC-2014118618

PATIENT
  Age: 37 Year
  Sex: Female
  Weight: 58.96 kg

DRUGS (17)
  1. GABAPENTIN [Suspect]
     Indication: CONVULSION
     Dosage: 300 MG, 3X/DAY
  2. GABAPENTIN [Suspect]
     Indication: NERVE INJURY
  3. ZIPSOR [Concomitant]
     Indication: ANTIINFLAMMATORY THERAPY
     Dosage: 25 MG, 3X/DAY
  4. ZIPSOR [Concomitant]
     Indication: MUSCLE SPASMS
  5. PERCOCET [Concomitant]
     Dosage: 325/10 MG, 4X/DAY
  6. TEMAZEPAM [Concomitant]
     Indication: INSOMNIA
     Dosage: 30 MG, 1X/DAY
  7. ZOLOFT [Concomitant]
     Indication: BIPOLAR I DISORDER
     Dosage: 50 MG, 1X/DAY
  8. ZOLOFT [Concomitant]
     Indication: POST-TRAUMATIC STRESS DISORDER
  9. XANAX [Concomitant]
     Indication: MULTIPLE SCLEROSIS
     Dosage: 2 MG, 3X/DAY
     Route: 048
     Dates: start: 2009
  10. XANAX [Concomitant]
     Indication: SPINAL COLUMN STENOSIS
  11. XANAX [Concomitant]
     Indication: OSTEOARTHRITIS
  12. XANAX [Concomitant]
     Indication: NERVE INJURY
  13. XANAX [Concomitant]
     Indication: TRICUSPID VALVE DISEASE
  14. XANAX [Concomitant]
     Indication: INSOMNIA
  15. XANAX [Concomitant]
     Indication: CONVULSION
  16. XANAX [Concomitant]
     Indication: ANXIETY
  17. XANAX [Concomitant]
     Indication: PANIC ATTACK

REACTIONS (2)
  - Blood cholesterol increased [Not Recovered/Not Resolved]
  - Anaemia [Not Recovered/Not Resolved]
